FAERS Safety Report 23631523 (Version 1)
Quarter: 2024Q1

REPORT INFORMATION
  Report Type: Spontaneous
  Country: DE (occurrence: DE)
  Receive Date: 20240314
  Receipt Date: 20240314
  Transmission Date: 20240410
  Serious: Yes (Other)
  Sender: FDA-Public Use
  Company Number: DE-ROCHE-3519439

PATIENT
  Age: 50 Year
  Sex: Female

DRUGS (6)
  1. EPIRUBICIN HYDROCHLORIDE [Suspect]
     Active Substance: EPIRUBICIN HYDROCHLORIDE
     Indication: HER2 positive breast cancer
     Dosage: UNK
     Dates: start: 202303, end: 202307
  2. LETROZOLE [Suspect]
     Active Substance: LETROZOLE
     Indication: HER2 positive breast cancer
     Dosage: UNK
     Dates: start: 202311
  3. ADO-TRASTUZUMAB EMTANSINE [Suspect]
     Active Substance: ADO-TRASTUZUMAB EMTANSINE
     Indication: HER2 positive breast cancer
     Dosage: UNK
     Dates: start: 202308
  4. PERTUZUMAB\TRASTUZUMAB [Suspect]
     Active Substance: PERTUZUMAB\TRASTUZUMAB
     Indication: HER2 positive breast cancer
     Dosage: UNK
     Dates: start: 202303, end: 202307
  5. CYCLOPHOSPHAMIDE [Suspect]
     Active Substance: CYCLOPHOSPHAMIDE
     Indication: HER2 positive breast cancer
     Dosage: UNK
     Dates: start: 202303, end: 202307
  6. PACLITAXEL [Suspect]
     Active Substance: PACLITAXEL
     Indication: HER2 positive breast cancer
     Dosage: UNK
     Dates: start: 202303, end: 202307

REACTIONS (1)
  - Pneumonitis [Unknown]
